FAERS Safety Report 9777509 (Version 1)
Quarter: 2013Q4

REPORT INFORMATION
  Report Type: Spontaneous
  Country: PT (occurrence: PT)
  Receive Date: 20131222
  Receipt Date: 20131222
  Transmission Date: 20140711
  Serious: Yes (Other)
  Sender: FDA-Public Use
  Company Number: PHHY2013PT146174

PATIENT
  Age: 39 Year
  Sex: Female

DRUGS (8)
  1. CICLOSPORIN [Suspect]
     Indication: IMMUNOSUPPRESSION
  2. PREDNISONE [Suspect]
     Indication: IMMUNOSUPPRESSION
  3. MYCOPHENOLIC ACID [Suspect]
     Indication: IMMUNOSUPPRESSION
  4. MESALAMINE [Concomitant]
     Indication: CROHN^S DISEASE
  5. PYRAZINAMIDE [Concomitant]
     Indication: TUBERCULOSIS
  6. RIFAMPIN [Concomitant]
     Indication: TUBERCULOSIS
  7. ISONIAZID [Concomitant]
     Indication: TUBERCULOSIS
  8. ETHAMBUTOL [Concomitant]
     Indication: TUBERCULOSIS

REACTIONS (2)
  - Kidney transplant rejection [Unknown]
  - Renal transplant failure [Unknown]
